FAERS Safety Report 25375079 (Version 2)
Quarter: 2025Q2

REPORT INFORMATION
  Report Type: Spontaneous
  Country: US (occurrence: US)
  Receive Date: 20250529
  Receipt Date: 20250617
  Transmission Date: 20250717
  Serious: Yes (Other)
  Sender: ABBVIE
  Company Number: US-ABBVIE-6293372

PATIENT
  Age: 16 Year
  Sex: Female
  Weight: 54 kg

DRUGS (1)
  1. INFED [Suspect]
     Active Substance: IRON DEXTRAN
     Indication: Product used for unknown indication
     Dosage: FREQUENCY: WEEKLY 6
     Route: 042
     Dates: start: 20241217, end: 20241217

REACTIONS (9)
  - Loss of consciousness [Recovered/Resolved]
  - Dizziness [Recovered/Resolved]
  - Flushing [Recovered/Resolved]
  - Chest pain [Unknown]
  - Dyspnoea [Unknown]
  - Urticaria [Unknown]
  - Swelling face [Unknown]
  - Pelvic pain [Unknown]
  - Back pain [Unknown]

NARRATIVE: CASE EVENT DATE: 20241217
